FAERS Safety Report 18437989 (Version 7)
Quarter: 2022Q4

REPORT INFORMATION
  Report Type: Report from Study
  Country: US (occurrence: US)
  Receive Date: 20201029
  Receipt Date: 20221018
  Transmission Date: 20230112
  Serious: Yes (Hospitalization, Other)
  Sender: FDA-Public Use
  Company Number: US-TAKEDA-US202013761

PATIENT
  Age: 72 Year
  Sex: Male

DRUGS (8)
  1. TEDUGLUTIDE [Suspect]
     Active Substance: TEDUGLUTIDE
     Indication: Short-bowel syndrome
     Dosage: 3.3 MILLIGRAM, 1X/DAY:QD
     Route: 058
     Dates: start: 20200415
  2. TEDUGLUTIDE [Suspect]
     Active Substance: TEDUGLUTIDE
     Indication: Short-bowel syndrome
     Dosage: 3.3 MILLIGRAM, 1X/DAY:QD
     Route: 058
     Dates: start: 20200415
  3. TEDUGLUTIDE [Suspect]
     Active Substance: TEDUGLUTIDE
     Indication: Short-bowel syndrome
     Dosage: 3.3 MILLIGRAM, 1X/DAY:QD
     Route: 058
     Dates: start: 20200415
  4. TEDUGLUTIDE [Suspect]
     Active Substance: TEDUGLUTIDE
     Indication: Short-bowel syndrome
     Dosage: 3.3 MILLIGRAM, 1X/DAY:QD
     Route: 058
     Dates: start: 20200415
  5. TEDUGLUTIDE [Suspect]
     Active Substance: TEDUGLUTIDE
     Dosage: 0.33 MILLILITER, 1X/DAY:QD
     Route: 058
     Dates: start: 20200415
  6. TEDUGLUTIDE [Suspect]
     Active Substance: TEDUGLUTIDE
     Dosage: 0.33 MILLILITER, 1X/DAY:QD
     Route: 058
     Dates: start: 20200415
  7. TEDUGLUTIDE [Suspect]
     Active Substance: TEDUGLUTIDE
     Dosage: 0.33 MILLILITER, 1X/DAY:QD
     Route: 058
     Dates: start: 20200415
  8. TEDUGLUTIDE [Suspect]
     Active Substance: TEDUGLUTIDE
     Dosage: 0.33 MILLILITER, 1X/DAY:QD
     Route: 058
     Dates: start: 20200415

REACTIONS (13)
  - Vascular device infection [Unknown]
  - Stoma complication [Unknown]
  - Injection related reaction [Unknown]
  - Pyrexia [Unknown]
  - Hyperhidrosis [Unknown]
  - Pain [Unknown]
  - Weight increased [Unknown]
  - Gastrointestinal stoma output decreased [Unknown]
  - Somnolence [Unknown]
  - Pruritus [Unknown]
  - Gastrointestinal stoma output abnormal [Unknown]
  - Nausea [Recovering/Resolving]
  - Therapy interrupted [Unknown]

NARRATIVE: CASE EVENT DATE: 20200415
